FAERS Safety Report 6198655-7 (Version None)
Quarter: 2009Q2

REPORT INFORMATION
  Report Type: 
  Country: None (occurrence: None)
  Receive Date: 20090521
  Receipt Date: 20090508
  Transmission Date: 20091009
  Serious: Yes (Other)
  Sender: FDA-Public Use
  Company Number: TR-GENENTECH-283094

PATIENT
  Sex: Female
  Weight: 75.011 kg

DRUGS (1)
  1. XOLAIR [Suspect]
     Indication: ASTHMA
     Dosage: 300 MG, Q2W
     Route: 058
     Dates: end: 20090424

REACTIONS (5)
  - COUGH [None]
  - DECREASED ACTIVITY [None]
  - DYSPNOEA [None]
  - GAIT DISTURBANCE [None]
  - PRODUCTIVE COUGH [None]
